FAERS Safety Report 7987260-5 (Version None)
Quarter: 2011Q4

REPORT INFORMATION
  Report Type: 
  Country: None (occurrence: None)
  Receive Date: 20111216
  Receipt Date: 20110426
  Transmission Date: 20120403
  Serious: No
  Sender: FDA-Public Use
  Company Number: US-BRISTOL-MYERS SQUIBB COMPANY-15639651

PATIENT
  Age: 36 Year
  Sex: Male

DRUGS (4)
  1. ABILIFY [Suspect]
     Indication: MAJOR DEPRESSION
     Dosage: DOSE INCREASED:10MG/DAY ON 29MAR2011
     Route: 048
     Dates: start: 20110321
  2. ABILIFY [Suspect]
     Indication: OBSESSIVE-COMPULSIVE DISORDER
     Dosage: DOSE INCREASED:10MG/DAY ON 29MAR2011
     Route: 048
     Dates: start: 20110321
  3. ABILIFY [Suspect]
     Indication: DEPRESSION
     Dosage: DOSE INCREASED:10MG/DAY ON 29MAR2011
     Route: 048
     Dates: start: 20110321
  4. PAXIL [Suspect]
     Dosage: 40MG THEN 60MG THEN INCREASED TO 80MG

REACTIONS (4)
  - FEELING ABNORMAL [None]
  - JAW DISORDER [None]
  - DISTURBANCE IN ATTENTION [None]
  - INSOMNIA [None]
